FAERS Safety Report 8833631 (Version 2)
Quarter: 2013Q3

REPORT INFORMATION
  Report Type: Report from Study
  Country: US (occurrence: US)
  Receive Date: 20121010
  Receipt Date: 20130910
  Transmission Date: 20140515
  Serious: No
  Sender: FDA-Public Use
  Company Number: US-VERTEX PHARMACEUTICAL INC.-2012-021882

PATIENT
  Sex: Female
  Weight: 36.28 kg

DRUGS (6)
  1. VX-770 [Suspect]
     Indication: CYSTIC FIBROSIS
     Dosage: 150 MG, BID
     Route: 048
     Dates: start: 20120206
  2. ALBUTEROL [Concomitant]
     Route: 045
  3. HYPER SAL [Concomitant]
     Route: 045
  4. SALINEX [Concomitant]
     Route: 050
  5. CREON 10 [Concomitant]
     Route: 048
  6. ACIDOPHILUS [Concomitant]
     Route: 048

REACTIONS (1)
  - Migraine [Unknown]
